FAERS Safety Report 24552653 (Version 3)
Quarter: 2025Q3

REPORT INFORMATION
  Report Type: Spontaneous
  Country: US (occurrence: US)
  Receive Date: 20241026
  Receipt Date: 20250809
  Transmission Date: 20251020
  Serious: Yes (Hospitalization, Other)
  Sender: ALEXION PHARMACEUTICALS
  Company Number: US-AstraZeneca-CH-00718481A

PATIENT
  Sex: Male

DRUGS (1)
  1. FARXIGA [Suspect]
     Active Substance: DAPAGLIFLOZIN PROPANEDIOL

REACTIONS (6)
  - COVID-19 [Unknown]
  - Urinary tract infection [Unknown]
  - Kidney infection [Unknown]
  - Peripheral swelling [Unknown]
  - Product availability issue [Unknown]
  - Product dose omission issue [Unknown]
